FAERS Safety Report 7899889-3 (Version None)
Quarter: 2011Q4

REPORT INFORMATION
  Report Type: 
  Country: None (occurrence: None)
  Receive Date: 20111107
  Receipt Date: 20111004
  Transmission Date: 20120403
  Serious: Yes (Hospitalization)
  Sender: FDA-Public Use
  Company Number: US-AMGEN-USASP2011034326

PATIENT
  Sex: Male

DRUGS (3)
  1. TREXALL [Concomitant]
  2. ENBREL [Suspect]
     Indication: RHEUMATOID ARTHRITIS
     Dosage: 50 MG, QWK
     Dates: start: 20061101
  3. ENBREL [Suspect]
     Indication: OSTEOARTHRITIS

REACTIONS (9)
  - RHEUMATOID ARTHRITIS [None]
  - DIZZINESS [None]
  - FALL [None]
  - NASOPHARYNGITIS [None]
  - MALAISE [None]
  - LACERATION [None]
  - ASTHENIA [None]
  - HEADACHE [None]
  - MENINGITIS VIRAL [None]
